FAERS Safety Report 7540461-2 (Version None)
Quarter: 2011Q2

REPORT INFORMATION
  Report Type: 
  Country: None (occurrence: None)
  Receive Date: 20110610
  Receipt Date: 20110525
  Transmission Date: 20111010
  Serious: Yes (Hospitalization, Congenital Anomaly)
  Sender: FDA-Public Use
  Company Number: A0685055A

PATIENT
  Sex: Female
  Weight: 3 kg

DRUGS (3)
  1. PAXIL [Suspect]
     Indication: ANXIETY
     Dosage: 20MG PER DAY
     Route: 064
     Dates: start: 20020301, end: 20050713
  2. PAXIL CR [Suspect]
     Indication: DEPRESSION
     Dosage: 25MG PER DAY
     Route: 064
     Dates: start: 20020301, end: 20050701
  3. PRENATAL VITAMINS [Concomitant]
     Route: 064

REACTIONS (10)
  - CARDIOMEGALY [None]
  - MITRAL VALVE INCOMPETENCE [None]
  - MUCOPOLYSACCHARIDOSIS I [None]
  - CONGENITAL OSTEODYSTROPHY [None]
  - AORTIC VALVE INCOMPETENCE [None]
  - TRICUSPID VALVE INCOMPETENCE [None]
  - DRUG EXPOSURE DURING PREGNANCY [None]
  - PATENT DUCTUS ARTERIOSUS [None]
  - VENTRICULAR HYPERTROPHY [None]
  - CARDIAC FAILURE CONGESTIVE [None]
